FAERS Safety Report 6018370-X (Version None)
Quarter: 2008Q4

REPORT INFORMATION
  Report Type: 
  Country: None (occurrence: None)
  Receive Date: 20081223
  Receipt Date: 20081223
  Transmission Date: 20090506
  Serious: Yes (Other)
  Sender: FDA-Public Use
  Company Number: FR-WYE-H07382708

PATIENT
  Sex: Male

DRUGS (6)
  1. TACROLIMUS [Suspect]
     Indication: PROPHYLAXIS AGAINST TRANSPLANT REJECTION
     Dates: start: 20080601
  2. AMARYL [Concomitant]
     Indication: DIABETES MELLITUS
     Dosage: NOT PROVIDED
     Dates: start: 20080327
  3. PANTOPRAZOLE SODIUM [Concomitant]
     Dosage: NOT PROVIDED
     Dates: start: 20080307
  4. INSULIN [Concomitant]
     Dosage: NOT PROVIDED
  5. MYCOPHENOLATE MOFETIL [Concomitant]
     Indication: PROPHYLAXIS AGAINST TRANSPLANT REJECTION
     Dosage: NOT PROVIDED
     Dates: start: 20080307
  6. AMLOD [Concomitant]
     Indication: HYPERTENSION
     Dosage: NOT PROVIDED
     Dates: start: 20080327

REACTIONS (1)
  - PROSTATE CANCER [None]
